FAERS Safety Report 5350014-2 (Version None)
Quarter: 2007Q2

REPORT INFORMATION
  Report Type: 
  Country: None (occurrence: None)
  Receive Date: 20070607
  Receipt Date: 20070529
  Transmission Date: 20071010
  Serious: Yes (Other)
  Sender: FDA-Public Use
  Company Number: US-PFIZER INC-2007045348

PATIENT
  Sex: Female
  Weight: 72.6 kg

DRUGS (9)
  1. CHANTIX [Suspect]
     Indication: SMOKING CESSATION THERAPY
  2. NASONEX [Concomitant]
  3. SYNTHROID [Concomitant]
     Dosage: DAILY DOSE:50MCG
  4. NEURONTIN [Concomitant]
     Dosage: DAILY DOSE:100MG-FREQ:HS
  5. CALCIUM CHLORIDE [Concomitant]
     Dosage: DAILY DOSE:2600MG
  6. ROCALTROL [Concomitant]
     Dosage: DAILY DOSE:25MG
  7. MONTELUKAST SODIUM [Concomitant]
  8. BLACK COHOSH [Concomitant]
  9. HERBAL PREPARATION INGREDIENTS UNKNOWN [Concomitant]

REACTIONS (2)
  - PANIC ATTACK [None]
  - WEIGHT INCREASED [None]
